FAERS Safety Report 6049069-1 (Version None)
Quarter: 2009Q1

REPORT INFORMATION
  Report Type: 
  Country: None (occurrence: None)
  Receive Date: 20090123
  Receipt Date: 20090112
  Transmission Date: 20090719
  Serious: Yes (Death, Other)
  Sender: FDA-Public Use
  Company Number: US-ROCHE-608449

PATIENT
  Age: 24 Year
  Sex: Male

DRUGS (4)
  1. DIAZEPAM [Suspect]
     Indication: SEDATION
     Route: 030
  2. ASPIRIN [Suspect]
     Indication: DRUG USE FOR UNKNOWN INDICATION
     Dosage: INGESTED BETWEEN 100 AND 300 TABLETS IN A SUICIDE ATTEMPT.
     Route: 048
  3. ASPIRIN [Suspect]
     Dosage: ROUTE REPORTED AS INGESTION
     Route: 048
  4. HALOPERIDOL [Suspect]
     Indication: SEDATION
     Route: 065

REACTIONS (3)
  - BRADYCARDIA [None]
  - COMPLETED SUICIDE [None]
  - VENTRICULAR TACHYCARDIA [None]
